FAERS Safety Report 21611902 (Version 4)
Quarter: 2023Q1

REPORT INFORMATION
  Report Type: Spontaneous
  Country: JP (occurrence: JP)
  Receive Date: 20221118
  Receipt Date: 20230306
  Transmission Date: 20230417
  Serious: Yes (Death, Other)
  Sender: FDA-Public Use
  Company Number: JP-AMGEN-JPNSP2022197940

PATIENT
  Age: 6 Year
  Sex: Male
  Weight: 17 kg

DRUGS (3)
  1. BLINCYTO [Suspect]
     Active Substance: BLINATUMOMAB
     Indication: Acute lymphocytic leukaemia
     Dosage: UNK
     Route: 065
  2. DEXAMETHASONE [Concomitant]
     Active Substance: DEXAMETHASONE
     Dosage: 5.6 MILLIGRAM/2.97 MG
     Route: 065
     Dates: start: 20190602, end: 20190605
  3. DEXAMETHASONE [Concomitant]
     Active Substance: DEXAMETHASONE
     Dosage: 5.6 MILLIGRAM/2.97 MG
     Route: 065
     Dates: start: 20190610, end: 20190612

REACTIONS (3)
  - Acute lymphocytic leukaemia [Fatal]
  - Central nervous system leukaemia [Fatal]
  - Leukoencephalopathy [Unknown]

NARRATIVE: CASE EVENT DATE: 20201125
